FAERS Safety Report 12497946 (Version 3)
Quarter: 2016Q3

REPORT INFORMATION
  Report Type: Spontaneous
  Country: JP (occurrence: JP)
  Receive Date: 20160626
  Receipt Date: 20160909
  Transmission Date: 20161109
  Serious: Yes (Hospitalization, Other)
  Sender: FDA-Public Use
  Company Number: PHJP2016JP017511

PATIENT
  Age: 45 Year
  Sex: Male

DRUGS (1)
  1. RITALIN [Suspect]
     Active Substance: METHYLPHENIDATE HYDROCHLORIDE
     Indication: PRODUCT USED FOR UNKNOWN INDICATION
     Route: 048
     Dates: end: 20160621

REACTIONS (6)
  - Overdose [Unknown]
  - Aggression [Unknown]
  - Drug abuse [Unknown]
  - Hallucination [Unknown]
  - Mental disorder [Recovering/Resolving]
  - Delusion [Unknown]
